FAERS Safety Report 17229609 (Version 1)
Quarter: 2019Q4

REPORT INFORMATION
  Report Type: Spontaneous
  Country: US (occurrence: US)
  Receive Date: 20191210
  Receipt Date: 20191210
  Transmission Date: 20200122
  Serious: No
  Sender: FDA-Public Use
  Company Number: None

PATIENT
  Sex: Female

DRUGS (1)
  1. STELARA [Suspect]
     Active Substance: USTEKINUMAB
     Indication: PSORIASIS
     Dosage: ?          OTHER FREQUENCY:ON DAY 0;?
     Route: 058
     Dates: start: 20190911

REACTIONS (5)
  - Pruritus [None]
  - Arthralgia [None]
  - Bone pain [None]
  - Fatigue [None]
  - Rash [None]
